FAERS Safety Report 18079417 (Version 1)
Quarter: 2020Q3

REPORT INFORMATION
  Report Type: Spontaneous
  Country: US (occurrence: US)
  Receive Date: 20200728
  Receipt Date: 20200728
  Transmission Date: 20201103
  Serious: No
  Sender: FDA-Public Use
  Company Number: US-MYLANLABS-2020M1065950

PATIENT
  Age: 51 Year
  Sex: Male
  Weight: 107 kg

DRUGS (2)
  1. PROCTOFOAM HC [Suspect]
     Active Substance: HYDROCORTISONE ACETATE\PRAMOXINE HYDROCHLORIDE
     Indication: ANAL PRURITUS
     Dosage: UNK
     Route: 054
     Dates: start: 20200716, end: 20200717
  2. PROCTOFOAM HC [Suspect]
     Active Substance: HYDROCORTISONE ACETATE\PRAMOXINE HYDROCHLORIDE
     Indication: ANORECTAL DISCOMFORT

REACTIONS (4)
  - Pain [Recovering/Resolving]
  - Discomfort [Recovering/Resolving]
  - Product dispensing issue [Unknown]
  - Incorrect dose administered [Recovering/Resolving]

NARRATIVE: CASE EVENT DATE: 20200716
